FAERS Safety Report 9429568 (Version 1)
Quarter: 2013Q3

REPORT INFORMATION
  Report Type: Spontaneous
  Country: US (occurrence: US)
  Receive Date: 20130730
  Receipt Date: 20130730
  Transmission Date: 20140515
  Serious: No
  Sender: FDA-Public Use
  Company Number: US-ABBOTT-13P-163-1062568-00

PATIENT
  Age: 72 Year
  Sex: Female
  Weight: 57.2 kg

DRUGS (6)
  1. NIASPAN (COATED) [Suspect]
     Indication: BLOOD CHOLESTEROL INCREASED
     Dates: start: 201203, end: 201206
  2. NIASPAN (COATED) [Suspect]
     Dates: start: 201206, end: 201302
  3. TRICOR [Concomitant]
     Indication: BLOOD CHOLESTEROL INCREASED
  4. CALCIUM [Concomitant]
     Indication: MINERAL SUPPLEMENTATION
  5. OMEGA 3 [Concomitant]
     Indication: SUPPLEMENTATION THERAPY
  6. ZESIRIL [Concomitant]
     Indication: HYPERTENSION

REACTIONS (2)
  - Drug ineffective [Not Recovered/Not Resolved]
  - Blood cholesterol [Not Recovered/Not Resolved]
